FAERS Safety Report 7498357-0 (Version None)
Quarter: 2011Q2

REPORT INFORMATION
  Report Type: 
  Country: None (occurrence: None)
  Receive Date: 20110524
  Receipt Date: 20110412
  Transmission Date: 20111010
  Serious: Yes (Hospitalization, Other)
  Sender: FDA-Public Use
  Company Number: US-BAYER-201041444NA

PATIENT
  Age: 18 Year
  Sex: Female
  Weight: 68.481 kg

DRUGS (9)
  1. YASMIN [Suspect]
     Indication: ACNE
     Dosage: UNK
     Dates: start: 20070613, end: 20070713
  2. BENTYL [Concomitant]
     Indication: MUSCLE SPASMS
     Dosage: 10 MG, QID
     Dates: start: 20081101
  3. YAZ [Suspect]
     Indication: ACNE
  4. DROSPIRENONE AND ETHINYL ESTRADIOL [Suspect]
     Indication: ACNE
  5. SULFAMETHOXAZOLE TRIMETHOPRIM [Concomitant]
     Dosage: UNK UNK, Q2HR
     Route: 048
  6. PHENERGAN HCL [Concomitant]
     Indication: NAUSEA
     Dosage: 25 MG, QID
     Dates: start: 20081101
  7. BACTRIM DS [Concomitant]
     Dosage: UNK UNK, BID
  8. PROMETHAZINE [Concomitant]
     Indication: NAUSEA
     Dosage: UNK UNK, QID
     Route: 048
  9. DICYCLOMINE [Concomitant]
     Indication: MUSCLE SPASMS
     Dosage: 10 MG, UNK
     Route: 048

REACTIONS (4)
  - PANCREATITIS [None]
  - PANCREATIC DISORDER [None]
  - ABDOMINAL PAIN UPPER [None]
  - GALLBLADDER DISORDER [None]
